FAERS Safety Report 7814463-2 (Version None)
Quarter: 2011Q4

REPORT INFORMATION
  Report Type: 
  Country: None (occurrence: None)
  Receive Date: 20111014
  Receipt Date: 20111007
  Transmission Date: 20120403
  Serious: Yes (Other)
  Sender: FDA-Public Use
  Company Number: PHEH2011US06372

PATIENT
  Sex: Female
  Weight: 62.132 kg

DRUGS (1)
  1. EXJADE [Suspect]
     Indication: HAEMOCHROMATOSIS
     Dosage: UNK UKN, UNK
     Route: 048
     Dates: start: 20070124

REACTIONS (1)
  - ROAD TRAFFIC ACCIDENT [None]
